FAERS Safety Report 24167391 (Version 2)
Quarter: 2025Q1

REPORT INFORMATION
  Report Type: Spontaneous
  Country: GB (occurrence: GB)
  Receive Date: 20240802
  Receipt Date: 20250124
  Transmission Date: 20250408
  Serious: Yes (Other)
  Sender: MYLAN
  Company Number: None

PATIENT
  Sex: Male

DRUGS (2)
  1. CETIRIZINE [Suspect]
     Active Substance: CETIRIZINE HYDROCHLORIDE
     Indication: Seasonal allergy
     Route: 065
  2. TEGRETOL [Concomitant]
     Active Substance: CARBAMAZEPINE
     Route: 065

REACTIONS (9)
  - Contusion [Recovering/Resolving]
  - Oral pain [Recovering/Resolving]
  - Swelling [Recovering/Resolving]
  - Feeling hot [Recovering/Resolving]
  - Gingival swelling [Recovering/Resolving]
  - Gingival bleeding [Recovering/Resolving]
  - Feeding disorder [Recovering/Resolving]
  - Erythema [Recovering/Resolving]
  - Discomfort [Recovering/Resolving]
